FAERS Safety Report 5066984-6 (Version None)
Quarter: 2006Q3

REPORT INFORMATION
  Report Type: 
  Country: None (occurrence: None)
  Receive Date: 20060726
  Receipt Date: 20060713
  Transmission Date: 20061208
  Serious: Yes (Life-Threatening, Hospitalization)
  Sender: FDA-Public Use
  Company Number: 2005-00912

PATIENT
  Age: 47 Year
  Sex: Female

DRUGS (18)
  1. VELCADE [Suspect]
     Indication: MULTIPLE MYELOMA
     Dosage: 2.00 + 1.80 MG, UNK, UNK - SEE IMAGE
     Dates: start: 20040630, end: 20040630
  2. VELCADE [Suspect]
     Indication: MULTIPLE MYELOMA
     Dosage: 2.00 + 1.80 MG, UNK, UNK - SEE IMAGE
     Dates: start: 20040703, end: 20040703
  3. THALIDOMIDE (THALIDOMIDE) [Suspect]
     Indication: MULTIPLE MYELOMA
     Dosage: 200.00 MG/UNK, UNK
     Dates: start: 20040703, end: 20040721
  4. DEXAMETHASONE [Suspect]
     Indication: MULTIPLE MYELOMA
     Dosage: 40.00 MG, UNK, UNK
     Dates: start: 20040702, end: 20040717
  5. DEXAMETHASONE [Suspect]
     Indication: MULTIPLE MYELOMA
     Dosage: 40.00 MG, UNK, UNK
     Dates: start: 20040818
  6. CISPLATIN [Suspect]
     Indication: MULTIPLE MYELOMA
     Dates: start: 20040703, end: 20040703
  7. CISPLATIN [Suspect]
     Indication: MULTIPLE MYELOMA
     Dates: start: 20040818
  8. ADRIAMYCIN PFS [Suspect]
     Indication: MULTIPLE MYELOMA
     Dosage: 40.00 MG,  UNK, UNK
     Dates: start: 20040703, end: 20040703
  9. ADRIAMYCIN PFS [Suspect]
     Indication: MULTIPLE MYELOMA
     Dosage: 40.00 MG,  UNK, UNK
     Dates: start: 20040818
  10. CYCLOPHOSPHAMIDE [Suspect]
     Indication: MULTIPLE MYELOMA
     Dosage: 724.00 MG, UNK, UNK
     Dates: start: 20040703, end: 20040718
  11. CYCLOPHOSPHAMIDE [Suspect]
     Indication: MULTIPLE MYELOMA
     Dosage: 724.00 MG, UNK, UNK
     Dates: start: 20040818
  12. ETOPOSIDE [Suspect]
     Indication: MULTIPLE MYELOMA
     Dosage: 72.00 MG, UNK, UNK
     Dates: start: 20040703, end: 20040718
  13. ETOPOSIDE [Suspect]
     Indication: MULTIPLE MYELOMA
     Dosage: 72.00 MG, UNK, UNK
     Dates: start: 20040818
  14. ZOMETA [Concomitant]
  15. PEPCID [Concomitant]
  16. FLEXERIL [Concomitant]
  17. LEVOXYL [Concomitant]
  18. STOOL SOFTENER (DOCUSATE SODIUM) [Concomitant]

REACTIONS (15)
  - BLOOD ALBUMIN DECREASED [None]
  - BLOOD CALCIUM INCREASED [None]
  - C-REACTIVE PROTEIN INCREASED [None]
  - CULTURE WOUND POSITIVE [None]
  - HAEMATOCRIT DECREASED [None]
  - HAEMOGLOBIN DECREASED [None]
  - HYPERCAPNIA [None]
  - HYPERURICAEMIA [None]
  - HYPOKALAEMIA [None]
  - LUNG INFILTRATION [None]
  - MENTAL STATUS CHANGES [None]
  - MYOCARDIAL INFARCTION [None]
  - PLATELET COUNT DECREASED [None]
  - PROTEIN TOTAL DECREASED [None]
  - RENAL FAILURE [None]
